FAERS Safety Report 4872422-6 (Version None)
Quarter: 2005Q4

REPORT INFORMATION
  Report Type: 
  Country: None (occurrence: None)
  Receive Date: 20051115
  Receipt Date: 20050722
  Transmission Date: 20060501
  Serious: Yes (Other)
  Sender: FDA-Public Use
  Company Number: 411938

PATIENT
  Age: 58 Year
  Sex: Male
  Weight: 90.7 kg

DRUGS (7)
  1. PEGASYS [Suspect]
     Indication: HEPATITIS C VIRUS
     Dosage: 180 MCG 1 PER WEEK SUBCUTANEOUS
     Route: 058
     Dates: start: 20050425
  2. COPEGUS [Suspect]
     Indication: HEPATITIS C VIRUS
     Dosage: 600 MG 2 PER DAY ORAL
     Route: 048
     Dates: start: 20050425
  3. NEURONTIN [Concomitant]
  4. ADVAIR DISKUS 100/50 [Concomitant]
  5. ALBUTEROL [Concomitant]
  6. ATROVENT [Concomitant]
  7. LISINOPRIL [Concomitant]

REACTIONS (11)
  - DELUSION [None]
  - DEPRESSION [None]
  - FATIGUE [None]
  - INFLUENZA LIKE ILLNESS [None]
  - INJECTION SITE RASH [None]
  - INSOMNIA [None]
  - PARANOIA [None]
  - PRURITUS [None]
  - PSYCHOTIC DISORDER [None]
  - RASH MACULAR [None]
  - WEIGHT DECREASED [None]
